FAERS Safety Report 8247950-6 (Version None)
Quarter: 2012Q1

REPORT INFORMATION
  Report Type: 
  Country: None (occurrence: None)
  Receive Date: 20120330
  Receipt Date: 20120321
  Transmission Date: 20120608
  Serious: Yes (Hospitalization)
  Sender: FDA-Public Use
  Company Number: MY-BRISTOL-MYERS SQUIBB COMPANY-15437312

PATIENT
  Age: 50 Year
  Sex: Female
  Weight: 43 kg

DRUGS (7)
  1. OXALIPLATIN [Suspect]
     Indication: COLORECTAL CANCER METASTATIC
     Dosage: 4 INF REC INF:20NOV10 INT 2DEC10(CYCLE 5),30DC10CYCLE6 REST 13DEC10;134MG 7SP-20NV10(74D)
     Route: 042
     Dates: start: 20100907
  2. FLUOROURACIL [Suspect]
     Indication: COLORECTAL CANCER METASTATIC
     Dosage: 4INF,REC20NV10. INT 2DC10(CYL 5)30DC10CYL6 REST13DC10 536MG,3200MG(3736MG) 7SP-20NV10(74D)
     Route: 042
     Dates: start: 20100907
  3. LEUCOVORIN CALCIUM [Suspect]
     Indication: COLORECTAL CANCER METASTATIC
     Dosage: INF:4 RECENT INF:20NOV10 IPD2DC10(CYCLE5)30DC10CYCLE6 RESTART 13DEC10:268MG 7SP-20NV10(74D)
     Route: 042
     Dates: start: 20100907
  4. CHLORPHENIRAMINE MALEATE [Concomitant]
     Dosage: AND ON 20NOV2010
     Route: 042
     Dates: start: 20101102
  5. ONDANSETRON [Concomitant]
     Route: 042
     Dates: start: 20101113
  6. CETUXIMAB [Suspect]
     Indication: COLORECTAL CANCER METASTATIC
     Dosage: 4INF,5MG/ML 7SP-20NV10(74D)(760MG),13DC10(670MG,1IN 2WK) INT 2DEC10,CYCLE5 30DC10-CYCLE6
     Route: 042
     Dates: start: 20100907
  7. HYDROCORTISONE [Concomitant]
     Route: 042
     Dates: start: 20101120

REACTIONS (3)
  - HYPOKALAEMIA [None]
  - DIARRHOEA [None]
  - HYPONATRAEMIA [None]
